FAERS Safety Report 8331909-4 (Version None)
Quarter: 2012Q2

REPORT INFORMATION
  Report Type: 
  Country: None (occurrence: None)
  Receive Date: 20120502
  Receipt Date: 20120424
  Transmission Date: 20120825
  Serious: No
  Sender: FDA-Public Use
  Company Number: US-AMGEN-USASP2012025913

PATIENT
  Age: 49 Year
  Sex: Female

DRUGS (1)
  1. ENBREL [Suspect]
     Indication: RHEUMATOID ARTHRITIS
     Dosage: 50 MG, QWK
     Dates: start: 20120319

REACTIONS (7)
  - PAIN IN EXTREMITY [None]
  - SKIN DISCOLOURATION [None]
  - BURNING SENSATION [None]
  - PARAESTHESIA [None]
  - CHILLS [None]
  - PYREXIA [None]
  - NAUSEA [None]
